FAERS Safety Report 7308483-4 (Version None)
Quarter: 2011Q1

REPORT INFORMATION
  Report Type: 
  Country: None (occurrence: None)
  Receive Date: 20110223
  Receipt Date: 20090817
  Transmission Date: 20110831
  Serious: No
  Sender: FDA-Public Use
  Company Number: 2009BI026198

PATIENT
  Sex: Female

DRUGS (2)
  1. TYSABRI [Suspect]
     Indication: MULTIPLE SCLEROSIS
     Route: 042
     Dates: start: 20070115, end: 20091208
  2. TYSABRI [Suspect]
     Route: 042
     Dates: start: 20100806

REACTIONS (3)
  - DRUG INEFFECTIVE [None]
  - MEMORY IMPAIRMENT [None]
  - BALANCE DISORDER [None]
